FAERS Safety Report 23450144 (Version 2)
Quarter: 2024Q1

REPORT INFORMATION
  Report Type: Spontaneous
  Country: US (occurrence: US)
  Receive Date: 20240129
  Receipt Date: 20240304
  Transmission Date: 20240410
  Serious: Yes (Hospitalization)
  Sender: FDA-Public Use
  Company Number: US-BIOVITRUM-2024-US-001337

PATIENT
  Age: 4 Month
  Sex: Male

DRUGS (2)
  1. SYNAGIS [Suspect]
     Active Substance: PALIVIZUMAB
     Indication: Premature baby
     Dosage: EVERY 28DAYS-30DAYS
     Route: 030
     Dates: start: 20231020, end: 20240117
  2. SYNAGIS [Suspect]
     Active Substance: PALIVIZUMAB
     Dosage: EVERY 28DAYS-30DAYS
     Route: 030
     Dates: start: 20231020, end: 202402

REACTIONS (4)
  - Urinary tract infection [Unknown]
  - Nasal congestion [Unknown]
  - Productive cough [Unknown]
  - Eye discharge [Unknown]

NARRATIVE: CASE EVENT DATE: 20240223
